FAERS Safety Report 17091137 (Version 1)
Quarter: 2019Q4

REPORT INFORMATION
  Report Type: Spontaneous
  Country: CN (occurrence: CN)
  Receive Date: 20191129
  Receipt Date: 20191129
  Transmission Date: 20200122
  Serious: Yes (Other)
  Sender: FDA-Public Use
  Company Number: CN-BAXTER-2019BAX024146

PATIENT
  Age: 58 Year
  Sex: Female
  Weight: 54 kg

DRUGS (16)
  1. 0.9% SODIUM CHLORIDE INJECTION [Suspect]
     Active Substance: SODIUM CHLORIDE
     Dosage: RITUXIMAB INJECTION 560 MG + 0.9% NS 600ML
     Route: 041
     Dates: start: 20191010, end: 20191010
  2. 0.9% SODIUM CHLORIDE INJECTION [Suspect]
     Active Substance: SODIUM CHLORIDE
     Dosage: CYCLOPHOSPHAMIDE + 0.9%NS; DOSE RE-INTRODUCED
     Route: 041
  3. VINCRISTINE SULFATE. [Suspect]
     Active Substance: VINCRISTINE SULFATE
     Indication: DIFFUSE LARGE B-CELL LYMPHOMA
     Dosage: VINCRISTINE SULFATE FOR INJECTION 2 MG + 0.9% NS 40ML
     Route: 041
     Dates: start: 20191011, end: 20191011
  4. VINCRISTINE SULFATE. [Suspect]
     Active Substance: VINCRISTINE SULFATE
     Dosage: VINCRISTINE + 0.9% NS; DOSE RE-INTRODUCED
     Route: 041
  5. DOXORUBICIN HYDROCHLORIDE. [Suspect]
     Active Substance: DOXORUBICIN HYDROCHLORIDE
     Indication: DIFFUSE LARGE B-CELL LYMPHOMA
     Dosage: DOXORUBICIN HYDROCHLORIDE FOR INJECTION 60 MG + 0.9% NS 40ML
     Route: 041
     Dates: start: 20191011, end: 20191011
  6. 0.9% SODIUM CHLORIDE INJECTION [Suspect]
     Active Substance: SODIUM CHLORIDE
     Dosage: VINCRISTINE SULFATE FOR INJECTION 2 MG + 0.9% NS 40ML
     Route: 041
     Dates: start: 20191011, end: 20191011
  7. 0.9% SODIUM CHLORIDE INJECTION [Suspect]
     Active Substance: SODIUM CHLORIDE
     Indication: MEDICATION DILUTION
     Dosage: CYCLOPHOSPHAMIDE FOR INJECTION 0.8 MG + 0.9% NS 40ML
     Route: 041
     Dates: start: 20191011, end: 20191011
  8. 0.9% SODIUM CHLORIDE INJECTION [Suspect]
     Active Substance: SODIUM CHLORIDE
     Dosage: RITUXIMAB + 0.9%NS; DOSE RE-INTRODUCED
     Route: 041
  9. 0.9% SODIUM CHLORIDE INJECTION [Suspect]
     Active Substance: SODIUM CHLORIDE
     Dosage: DOXORUBICIN + 0.9%NS; DOSE RE-INTRODUCED
     Route: 041
  10. ENDOXAN [Suspect]
     Active Substance: CYCLOPHOSPHAMIDE
     Dosage: CYCLOPHOSPHAMIDE + 0.9% NS; DOSE RE-INTRODUCED
     Route: 041
  11. 0.9% SODIUM CHLORIDE INJECTION [Suspect]
     Active Substance: SODIUM CHLORIDE
     Dosage: VINCRISTINE + 0.9%NS; DOSE RE-INTRODUCED
     Route: 041
  12. RITUXIMAB. [Suspect]
     Active Substance: RITUXIMAB
     Dosage: RITUXIMAB + 0.9%NS; DOSE RE-INTRODUCED
     Route: 041
  13. DOXORUBICIN HYDROCHLORIDE. [Suspect]
     Active Substance: DOXORUBICIN HYDROCHLORIDE
     Dosage: DOXORUBICIN + 0.9% NS; DOSE RE-INTRODUCED
     Route: 041
  14. ENDOXAN [Suspect]
     Active Substance: CYCLOPHOSPHAMIDE
     Indication: DIFFUSE LARGE B-CELL LYMPHOMA
     Dosage: CYCLOPHOSPHAMIDE FOR INJECTION 0.8 MG + 0.9% NS 40ML
     Route: 041
     Dates: start: 20191011, end: 20191011
  15. 0.9% SODIUM CHLORIDE INJECTION [Suspect]
     Active Substance: SODIUM CHLORIDE
     Dosage: DOXORUBICIN HYDROCHLORIDE FOR INJECTION 60 MG + 0.9% NS 40ML
     Route: 041
     Dates: start: 20191011, end: 20191011
  16. RITUXIMAB. [Suspect]
     Active Substance: RITUXIMAB
     Indication: DIFFUSE LARGE B-CELL LYMPHOMA
     Dosage: RITUXIMAB INJECTION 560 MG + 0.9% NS 600ML
     Route: 041
     Dates: start: 20191010, end: 20191010

REACTIONS (1)
  - Neutropenia [Recovered/Resolved]

NARRATIVE: CASE EVENT DATE: 20191022
